FAERS Safety Report 19372477 (Version 1)
Quarter: 2021Q2

REPORT INFORMATION
  Report Type: Spontaneous
  Country: FI (occurrence: FI)
  Receive Date: 20210604
  Receipt Date: 20210604
  Transmission Date: 20210717
  Serious: No
  Sender: FDA-Public Use
  Company Number: FI-SA-2020SA338982

PATIENT

DRUGS (1)
  1. KLEXANE [Suspect]
     Active Substance: ENOXAPARIN
     Dosage: UNK

REACTIONS (1)
  - Device malfunction [Unknown]
